FAERS Safety Report 23721066 (Version 1)
Quarter: 2024Q2

REPORT INFORMATION
  Report Type: Spontaneous
  Country: IT (occurrence: IT)
  Receive Date: 20240409
  Receipt Date: 20240409
  Transmission Date: 20240715
  Serious: Yes (Other)
  Sender: FDA-Public Use
  Company Number: None

PATIENT
  Age: 32 Year
  Sex: Male

DRUGS (10)
  1. CAPECITABINE [Suspect]
     Active Substance: CAPECITABINE
     Indication: Colon neoplasm
     Dosage: CAPECITABINE 500MG 2 TABLETS AFTER BREAKFAST AND AFTER DINNER, SECOND COURSE OF THERAPY
     Route: 048
     Dates: start: 20231105, end: 20231119
  2. PANTOPRAZOLE [Concomitant]
     Active Substance: PANTOPRAZOLE
     Dosage: DAILY DOSE: 20 MILLIGRAM
  3. ANORO ELLIPTA [Concomitant]
     Active Substance: UMECLIDINIUM BROMIDE\VILANTEROL TRIFENATATE
     Dosage: DAILY DOSE: 1 DOSAGE FORM
     Route: 055
  4. DEURSIL [Concomitant]
     Active Substance: URSODIOL
     Dosage: 1CP IN THE AFTERNOON OF 300MG?DAILY DOSE: 300 MILLIGRAM
     Route: 048
  5. SIMVASTATIN [Concomitant]
     Active Substance: SIMVASTATIN
     Dosage: DAILY DOSE: 10 MILLIGRAM
     Route: 048
  6. NITROGLYCERIN [Concomitant]
     Active Substance: NITROGLYCERIN
     Dosage: NITROGLYCERINE PATCH 10MCG/H MORNING AND EVENING
     Route: 062
  7. Folina [Concomitant]
  8. LASIX [Concomitant]
     Active Substance: FUROSEMIDE
     Dosage: DAILY DOSE: 25 MILLIGRAM
  9. ACETAMINOPHEN [Concomitant]
     Active Substance: ACETAMINOPHEN
     Dosage: DAILY DOSE: 1000 MILLIGRAM
  10. NALOXONE HYDROCHLORIDE\OXYCODONE HYDROCHLORIDE [Concomitant]
     Active Substance: NALOXONE HYDROCHLORIDE\OXYCODONE HYDROCHLORIDE
     Dosage: TID?DAILY DOSE: 15 MILLIGRAM

REACTIONS (1)
  - Ascites [Unknown]

NARRATIVE: CASE EVENT DATE: 20231113
